FAERS Safety Report 10289707 (Version 5)
Quarter: 2015Q3

REPORT INFORMATION
  Report Type: Report from Study
  Country: CA (occurrence: CA)
  Receive Date: 20140710
  Receipt Date: 20150702
  Transmission Date: 20151125
  Serious: Yes (Hospitalization, Other)
  Sender: FDA-Public Use
  Company Number: CA-JNJFOC-20140703568

PATIENT
  Sex: Male
  Weight: 68 kg

DRUGS (12)
  1. REMICADE [Suspect]
     Active Substance: INFLIXIMAB
     Indication: RHEUMATOID ARTHRITIS
     Route: 042
     Dates: start: 201311
  2. REMICADE [Suspect]
     Active Substance: INFLIXIMAB
     Indication: RHEUMATOID ARTHRITIS
     Route: 042
     Dates: start: 20150625
  3. DEXALONE [Concomitant]
     Route: 065
  4. VITAMIN D [Concomitant]
     Active Substance: CHOLECALCIFEROL
     Route: 065
  5. METHOTREXATE [Concomitant]
     Active Substance: METHOTREXATE
     Dosage: EVERY SUNDAY
     Route: 048
  6. ACLASTA [Concomitant]
     Active Substance: ZOLEDRONIC ACID
     Route: 042
     Dates: start: 201402
  7. ACETAMINOPHEN. [Concomitant]
     Active Substance: ACETAMINOPHEN
     Route: 065
  8. FOLIC ACID. [Concomitant]
     Active Substance: FOLIC ACID
     Route: 065
  9. CALCIUM [Concomitant]
     Active Substance: CALCIUM
     Route: 065
  10. PREDNISONE. [Concomitant]
     Active Substance: PREDNISONE
     Route: 065
  11. NAPROXEN. [Concomitant]
     Active Substance: NAPROXEN
     Route: 065
  12. MAXIDEX [Concomitant]
     Active Substance: DEXAMETHASONE
     Dosage: SUSPENSION 0.1%
     Route: 065

REACTIONS (4)
  - Squamous cell carcinoma [Not Recovered/Not Resolved]
  - Corneal perforation [Recovering/Resolving]
  - Herpes zoster [Unknown]
  - Eye infection [Recovered/Resolved]

NARRATIVE: CASE EVENT DATE: 2014
